APPROVED DRUG PRODUCT: DURANEST
Active Ingredient: EPINEPHRINE BITARTRATE; ETIDOCAINE HYDROCHLORIDE
Strength: 0.005MG/ML;1% **Federal Register determination that product was not discontinued or withdrawn for safety or effectiveness reasons**
Dosage Form/Route: INJECTABLE;INJECTION
Application: N017751 | Product #006
Applicant: ASTRAZENECA LP
Approved: Approved Prior to Jan 1, 1982 | RLD: Yes | RS: No | Type: DISCN